FAERS Safety Report 13423384 (Version 1)
Quarter: 2017Q2

REPORT INFORMATION
  Report Type: Spontaneous
  Country: GB (occurrence: GB)
  Receive Date: 20170410
  Receipt Date: 20170410
  Transmission Date: 20170830
  Serious: Yes (Other)
  Sender: FDA-Public Use
  Company Number: GB-PFIZER INC-2016479442

PATIENT
  Age: 55 Year
  Sex: Male

DRUGS (5)
  1. MIRTAZAPINE. [Suspect]
     Active Substance: MIRTAZAPINE
     Dosage: UNK
  2. QUETIAPINE SANDOZ [Suspect]
     Active Substance: QUETIAPINE
     Dosage: UNK
  3. OXYCODONE HYDROCHLORIDE. [Suspect]
     Active Substance: OXYCODONE HYDROCHLORIDE
     Dosage: UNK
  4. GABAPENTIN SANDOZ [Suspect]
     Active Substance: GABAPENTIN
     Dosage: 900 MG, 3X/DAY
  5. LYRICA [Suspect]
     Active Substance: PREGABALIN
     Indication: ANXIETY DISORDER
     Dosage: TOT 75 MG (25 MG IN THE MORNING, 25 MG AT 4 PM AND 25 MG AT 8 PM)

REACTIONS (5)
  - Urinary retention [Unknown]
  - Posture abnormal [Unknown]
  - Cognitive disorder [Unknown]
  - Circumstance or information capable of leading to medication error [Unknown]
  - Muscle twitching [Unknown]
